FAERS Safety Report 10273880 (Version 1)
Quarter: 2014Q3

REPORT INFORMATION
  Report Type: Report from Study
  Country: CA (occurrence: CA)
  Receive Date: 20140702
  Receipt Date: 20140702
  Transmission Date: 20150326
  Serious: Yes (Hospitalization, Other)
  Sender: FDA-Public Use
  Company Number: CA-ABBVIE-14P-028-1251625-00

PATIENT
  Sex: Male

DRUGS (2)
  1. HUMIRA [Suspect]
     Active Substance: ADALIMUMAB
     Dosage: LATEST INJECTION 12-JUN-2014
     Route: 058
  2. HUMIRA [Suspect]
     Active Substance: ADALIMUMAB
     Indication: CROHN^S DISEASE
     Route: 058
     Dates: start: 20120728, end: 2013

REACTIONS (8)
  - Abdominal pain [Recovered/Resolved]
  - Incision site oedema [Recovered/Resolved]
  - Nasal septum deviation [Recovered/Resolved]
  - Inguinal hernia [Unknown]
  - Back pain [Recovered/Resolved]
  - Anal abscess [Recovered/Resolved]
  - Infection [Recovered/Resolved]
  - Pyrexia [Recovered/Resolved]

NARRATIVE: CASE EVENT DATE: 2013
